FAERS Safety Report 4614599-3 (Version None)
Quarter: 2005Q2

REPORT INFORMATION
  Report Type: 
  Country: None (occurrence: None)
  Receive Date: 20050307
  Receipt Date: 20041122
  Transmission Date: 20051028
  Serious: No
  Sender: FDA-Public Use
  Company Number: USA040979555

PATIENT
  Sex: Female

DRUGS (5)
  1. ALIMTA [Suspect]
     Indication: NON-SMALL CELL LUNG CANCER STAGE IV
     Dosage: 750 MG
     Dates: start: 20040908
  2. VITAMIN B-12 [Concomitant]
  3. FOLIC ACID [Concomitant]
  4. STOOL SOFTNERS/LAXATIVES [Concomitant]
  5. FENTANYL [Concomitant]

REACTIONS (1)
  - DIARRHOEA [None]
